FAERS Safety Report 6679323-1 (Version None)
Quarter: 2010Q2

REPORT INFORMATION
  Report Type: 
  Country: None (occurrence: None)
  Receive Date: 20100413
  Receipt Date: 20100401
  Transmission Date: 20101027
  Serious: Yes (Hospitalization)
  Sender: FDA-Public Use
  Company Number: IN-ELI_LILLY_AND_COMPANY-IN201003005426

PATIENT
  Sex: Female
  Weight: 89 kg

DRUGS (4)
  1. GEMCITABINE HCL [Suspect]
     Indication: BREAST CANCER METASTATIC
     Dosage: 2000 MG, DAYS 1 + 8 EVERY 3 WEEKS
     Route: 042
     Dates: start: 20100125
  2. GEMCITABINE HCL [Suspect]
     Dosage: 562.5 MG/M2, DAY ONE
     Route: 042
     Dates: start: 20100308
  3. VINFLUNINE [Suspect]
     Indication: BREAST CANCER METASTATIC
     Dosage: 640 MG, DAY 1 EVERY 3 WEEKS
     Route: 042
     Dates: start: 20100125
  4. VINFLUNINE [Suspect]
     Dosage: 250 MG/M2, DAY ONE
     Route: 042
     Dates: start: 20100308

REACTIONS (15)
  - ABDOMINAL PAIN [None]
  - CANDIDIASIS [None]
  - CONSTIPATION [None]
  - DECREASED APPETITE [None]
  - ENTERITIS [None]
  - ENTEROCOLITIS [None]
  - FATIGUE [None]
  - HYPOKALAEMIA [None]
  - HYPONATRAEMIA [None]
  - ILEUS PARALYTIC [None]
  - LEUKOPENIA [None]
  - NAUSEA [None]
  - NEUTROPENIA [None]
  - PAIN IN JAW [None]
  - PYREXIA [None]
